FAERS Safety Report 11985555 (Version 2)
Quarter: 2016Q1

REPORT INFORMATION
  Report Type: Report from Study
  Country: US (occurrence: US)
  Receive Date: 20160201
  Receipt Date: 20160304
  Transmission Date: 20160526
  Serious: Yes (Hospitalization)
  Sender: FDA-Public Use
  Company Number: US-ABBVIE-16K-163-1547257-00

PATIENT
  Age: 59 Year
  Sex: Female

DRUGS (3)
  1. HUMIRA [Suspect]
     Active Substance: ADALIMUMAB
     Indication: RHEUMATOID ARTHRITIS
     Route: 058
     Dates: start: 20151214
  2. HUMIRA [Suspect]
     Active Substance: ADALIMUMAB
     Route: 058
     Dates: start: 201602
  3. HUMIRA [Suspect]
     Active Substance: ADALIMUMAB
     Route: 058
     Dates: end: 201602

REACTIONS (11)
  - Fall [Unknown]
  - Hypertension [Recovering/Resolving]
  - Gout [Recovered/Resolved]
  - Large intestinal obstruction [Recovered/Resolved]
  - Joint swelling [Unknown]
  - Panic attack [Recovered/Resolved]
  - Migraine [Recovered/Resolved]
  - Contusion [Recovering/Resolving]
  - Anxiety [Unknown]
  - Cardio-respiratory arrest [Unknown]
  - Enuresis [Recovered/Resolved]

NARRATIVE: CASE EVENT DATE: 201512
